FAERS Safety Report 26055702 (Version 2)
Quarter: 2025Q4

REPORT INFORMATION
  Report Type: Report from Study
  Country: CA (occurrence: CA)
  Receive Date: 20251117
  Receipt Date: 20251223
  Transmission Date: 20260118
  Serious: Yes (Other)
  Sender: Alvotech
  Company Number: CA-JAMP PHARMA CORPORATION-2025-JAM-CA-00784

PATIENT
  Age: 18 Year
  Sex: Female
  Weight: 56.4 kg

DRUGS (6)
  1. SIMLANDI [Suspect]
     Active Substance: ADALIMUMAB-RYVK
     Indication: Uveitis
     Dosage: 40 MG, WEEKLY
     Route: 058
     Dates: start: 20240719
  2. SIMLANDI [Suspect]
     Active Substance: ADALIMUMAB-RYVK
     Indication: Uveitis
     Dosage: 40 MG, EVERY 2 WEEKS
     Route: 058
  3. SIMLANDI [Suspect]
     Active Substance: ADALIMUMAB-RYVK
     Indication: Uveitis
     Dosage: 40 MG, EVERY 4 WEEK
     Route: 058
     Dates: start: 202508
  4. SIMLANDI [Suspect]
     Active Substance: ADALIMUMAB-RYVK
     Indication: Uveitis
     Dosage: 40 MG
     Route: 058
     Dates: start: 20250628
  5. SIMLANDI [Suspect]
     Active Substance: ADALIMUMAB-RYVK
     Indication: Uveitis
     Dosage: 40 MG, EVERY 3 WEEKS
     Route: 058
     Dates: start: 20250201
  6. SIMLANDI [Suspect]
     Active Substance: ADALIMUMAB-RYVK
     Indication: Uveitis
     Dosage: 40 MG
     Route: 058
     Dates: start: 20240719

REACTIONS (2)
  - Uveitis [Not Recovered/Not Resolved]
  - Off label use [Unknown]
